FAERS Safety Report 8826197 (Version 2)
Quarter: 2012Q4

REPORT INFORMATION
  Report Type: 
  Country: GB (occurrence: GB)
  Receive Date: 20121005
  Receipt Date: 20121228
  Transmission Date: 20130627
  Serious: Yes (Other)
  Sender: FDA-Public Use
  Company Number: GB-TEVA-361923ISR

PATIENT
  Sex: Male

DRUGS (6)
  1. PREDNISOLONE [Suspect]
     Indication: GLOMERULONEPHRITIS MEMBRANOPROLIFERATIVE
     Dosage: Various doses
     Route: 065
     Dates: start: 201001, end: 201203
  2. PREDNISOLONE [Suspect]
     Dosage: 60 Milligram Daily;
     Route: 065
     Dates: start: 201001, end: 201002
  3. PREDNISOLONE [Suspect]
     Dosage: 40 Milligram Daily;
     Route: 065
     Dates: start: 201002, end: 201003
  4. PREDNISOLONE [Suspect]
     Route: 065
     Dates: start: 201003, end: 201109
  5. PREDNISOLONE [Suspect]
     Dosage: 35 Milligram Daily;
     Route: 065
     Dates: start: 201109, end: 201203
  6. PREDNISOLONE [Suspect]
     Dosage: 5 Milligram Daily;
     Route: 065
     Dates: start: 201203

REACTIONS (3)
  - Amnesia [Not Recovered/Not Resolved]
  - Confusional state [Not Recovered/Not Resolved]
  - Hallucination [Not Recovered/Not Resolved]
